FAERS Safety Report 6223504-8 (Version None)
Quarter: 2009Q2

REPORT INFORMATION
  Report Type: 
  Country: None (occurrence: None)
  Receive Date: 20090610
  Receipt Date: 20090323
  Transmission Date: 20091009
  Serious: Yes (Hospitalization)
  Sender: FDA-Public Use
  Company Number: E-09-046

PATIENT
  Sex: Male

DRUGS (1)
  1. LACTULOSE [Suspect]
     Dosage: PO
     Route: 048
     Dates: start: 20090214

REACTIONS (2)
  - AMMONIA INCREASED [None]
  - DRUG INEFFECTIVE [None]
